FAERS Safety Report 6617991-0 (Version None)
Quarter: 2010Q1

REPORT INFORMATION
  Report Type: 
  Country: None (occurrence: None)
  Receive Date: 20100308
  Receipt Date: 20100225
  Transmission Date: 20100710
  Serious: Yes (Other)
  Sender: FDA-Public Use
  Company Number: JP-ASTRAZENECA-2010SE09372

PATIENT
  Age: 77 Year
  Sex: Female

DRUGS (4)
  1. SEROQUEL [Suspect]
     Route: 048
     Dates: start: 20100224, end: 20100224
  2. RISPERDAL [Concomitant]
     Route: 048
  3. DILTIAZEM HYDROCHLORIDE [Concomitant]
     Route: 048
  4. LASIX [Concomitant]
     Route: 048

REACTIONS (1)
  - COMA [None]
